FAERS Safety Report 9146343 (Version 2)
Quarter: 2013Q2

REPORT INFORMATION
  Report Type: Spontaneous
  Country: US (occurrence: US)
  Receive Date: 20130307
  Receipt Date: 20130621
  Transmission Date: 20140414
  Serious: Yes (Other)
  Sender: FDA-Public Use
  Company Number: US-AMGEN-USASP2013015143

PATIENT
  Age: 39 Year
  Sex: Female
  Weight: 91.61 kg

DRUGS (7)
  1. ENBREL [Suspect]
     Indication: RHEUMATOID ARTHRITIS
     Dosage: 50 MG, QWK
     Route: 058
     Dates: start: 20121206, end: 20121206
  2. REPREXAIN [Concomitant]
     Indication: PAIN
     Dosage: 5 - 200 MG 6 HRS PRN
     Route: 048
  3. AMITRIPTYLINE [Concomitant]
     Indication: FIBROMYALGIA
     Dosage: 25 MG, Q8H
     Route: 048
  4. PREDNISONE [Concomitant]
     Indication: RHEUMATOID ARTHRITIS
     Dosage: 5 MG, QD
     Route: 048
  5. METHOTREXATE [Concomitant]
     Indication: RHEUMATOID ARTHRITIS
     Dosage: 20 MG, QWK
     Route: 048
  6. FOLIC ACID [Concomitant]
     Dosage: 3 MG, QD
  7. OMEPRAZOLE [Concomitant]
     Indication: GASTROOESOPHAGEAL REFLUX DISEASE
     Dosage: 20 MG DAILY PRN

REACTIONS (3)
  - Throat tightness [Recovered/Resolved]
  - Swollen tongue [Recovered/Resolved]
  - Dysphagia [Recovered/Resolved]
